FAERS Safety Report 22176945 (Version 1)
Quarter: 2023Q2

REPORT INFORMATION
  Report Type: Spontaneous
  Country: FR (occurrence: None)
  Receive Date: 20230405
  Receipt Date: 20230405
  Transmission Date: 20230722
  Serious: Yes (Hospitalization)
  Sender: FDA-Public Use
  Company Number: 2023A074626

PATIENT
  Age: 81 Year
  Sex: Female
  Weight: 47.5 kg

DRUGS (2)
  1. TAGRISSO [Interacting]
     Active Substance: OSIMERTINIB
     Indication: Non-small cell lung cancer metastatic
     Dosage: 1 CP/J
     Dates: start: 20220308
  2. ELIQUIS [Interacting]
     Active Substance: APIXABAN
     Indication: Pulmonary embolism
     Dosage: 2 CP/J
     Dates: start: 202203, end: 20230112

REACTIONS (2)
  - Melaena [Unknown]
  - Anaemia [Unknown]

NARRATIVE: CASE EVENT DATE: 20230106
